FAERS Safety Report 6826759-1 (Version None)
Quarter: 2010Q3

REPORT INFORMATION
  Report Type: 
  Country: None (occurrence: None)
  Receive Date: 20100709
  Receipt Date: 20100701
  Transmission Date: 20110219
  Serious: Yes (Other)
  Sender: FDA-Public Use
  Company Number: BR-ROCHE-684813

PATIENT
  Sex: Male
  Weight: 83 kg

DRUGS (2)
  1. XELODA [Suspect]
     Indication: COLON CANCER
     Dosage: FREQUENCY: D1 TO D14
     Route: 048
     Dates: start: 20091008, end: 20100120
  2. XELODA [Suspect]
     Dosage: START DATE: 2010
     Route: 048
     Dates: start: 20100101, end: 20100101

REACTIONS (4)
  - DIABETES MELLITUS INADEQUATE CONTROL [None]
  - HYPERTRIGLYCERIDAEMIA [None]
  - HYPOTHYROIDISM [None]
  - PALMAR-PLANTAR ERYTHRODYSAESTHESIA SYNDROME [None]
